FAERS Safety Report 6878076-1 (Version None)
Quarter: 2010Q2

REPORT INFORMATION
  Report Type: 
  Country: None (occurrence: None)
  Receive Date: 20100616
  Receipt Date: 20100323
  Transmission Date: 20101027
  Serious: No
  Sender: FDA-Public Use
  Company Number: DSA_33623_2009

PATIENT
  Sex: Female
  Weight: 65.318 kg

DRUGS (5)
  1. XENAZINE [Suspect]
     Indication: HUNTINGTON'S CHOREA
     Dosage: (12.5 MG, TWO ATBLETS IN THE MORNING AND ONE AT NOON ORAL), (12.5 MG BID ORAL), (18.75 MG, 12.5 MG I
     Route: 048
     Dates: start: 20090401, end: 20090101
  2. XENAZINE [Suspect]
     Indication: HUNTINGTON'S CHOREA
     Dosage: (12.5 MG, TWO ATBLETS IN THE MORNING AND ONE AT NOON ORAL), (12.5 MG BID ORAL), (18.75 MG, 12.5 MG I
     Route: 048
     Dates: start: 20090306, end: 20090401
  3. XENAZINE [Suspect]
     Indication: HUNTINGTON'S CHOREA
     Dosage: (12.5 MG, TWO ATBLETS IN THE MORNING AND ONE AT NOON ORAL), (12.5 MG BID ORAL), (18.75 MG, 12.5 MG I
     Route: 048
     Dates: start: 20090402, end: 20090401
  4. XENAZINE [Suspect]
     Indication: HUNTINGTON'S CHOREA
     Dosage: (12.5 MG, TWO ATBLETS IN THE MORNING AND ONE AT NOON ORAL), (12.5 MG BID ORAL), (18.75 MG, 12.5 MG I
     Route: 048
     Dates: start: 20090101
  5. ATROVENT [Concomitant]

REACTIONS (2)
  - DRUG ADMINISTRATION ERROR [None]
  - INSOMNIA [None]
